FAERS Safety Report 4672729-1 (Version None)
Quarter: 2005Q2

REPORT INFORMATION
  Report Type: 
  Country: None (occurrence: None)
  Receive Date: 20050524
  Receipt Date: 20040813
  Transmission Date: 20051028
  Serious: Yes (Hospitalization)
  Sender: FDA-Public Use
  Company Number: US-GLAXOSMITHKLINE-A0522125A

PATIENT
  Age: 78 Year
  Sex: Male

DRUGS (5)
  1. LANOXIN [Suspect]
     Indication: CARDIAC FAILURE
     Dosage: 250MCG TWICE PER DAY
     Route: 042
     Dates: end: 20040813
  2. LANOXIN [Suspect]
  3. CASODEX [Concomitant]
  4. ATIVAN [Concomitant]
  5. TEQUIN [Concomitant]

REACTIONS (4)
  - ACCIDENTAL OVERDOSE [None]
  - CARDIAC FAILURE CONGESTIVE [None]
  - ELECTROCARDIOGRAM CHANGE [None]
  - THERAPEUTIC AGENT TOXICITY [None]
